FAERS Safety Report 23343999 (Version 2)
Quarter: 2024Q1

REPORT INFORMATION
  Report Type: Report from Study
  Country: US (occurrence: US)
  Receive Date: 20231227
  Receipt Date: 20240208
  Transmission Date: 20240410
  Serious: Yes (Death, Life-Threatening, Other)
  Sender: FDA-Public Use
  Company Number: US-BRISTOL-MYERS SQUIBB COMPANY-2023-187757

PATIENT
  Age: 87 Year
  Sex: Male

DRUGS (1)
  1. POMALYST [Suspect]
     Active Substance: POMALIDOMIDE
     Indication: Plasma cell myeloma
     Dosage: QD (EVERYDAY) X 21 DAYS THEN 7 DAYS OFF
     Route: 048
     Dates: start: 20230419

REACTIONS (1)
  - Death [Fatal]

NARRATIVE: CASE EVENT DATE: 20231223
